FAERS Safety Report 11702971 (Version 1)
Quarter: 2015Q4

REPORT INFORMATION
  Report Type: Spontaneous
  Country: US (occurrence: US)
  Receive Date: 20151105
  Receipt Date: 20151105
  Transmission Date: 20160304
  Serious: No
  Sender: FDA-Public Use
  Company Number: US-APOPHARMA USA, INC.-2013AP001004

PATIENT
  Age: 63 Year
  Sex: Male
  Weight: 131 kg

DRUGS (5)
  1. ACTOS [Concomitant]
     Active Substance: PIOGLITAZONE HYDROCHLORIDE
  2. LISINOPRIL. [Concomitant]
     Active Substance: LISINOPRIL
  3. SIMVASTATIN. [Concomitant]
     Active Substance: SIMVASTATIN
  4. FERRIPROX [Suspect]
     Active Substance: DEFERIPRONE
     Indication: IRON METABOLISM DISORDER
     Route: 048
     Dates: start: 20130107
  5. METFORMIN [Concomitant]
     Active Substance: METFORMIN HYDROCHLORIDE

REACTIONS (1)
  - Umbilical discharge [Recovering/Resolving]

NARRATIVE: CASE EVENT DATE: 20130110
